FAERS Safety Report 7320212-7 (Version None)
Quarter: 2011Q1

REPORT INFORMATION
  Report Type: 
  Country: None (occurrence: None)
  Receive Date: 20110214
  Receipt Date: 20110201
  Transmission Date: 20110831
  Serious: Yes (Hospitalization)
  Sender: FDA-Public Use
  Company Number: 023765

PATIENT
  Sex: Male

DRUGS (3)
  1. CIMZIA [Suspect]
     Indication: CROHN'S DISEASE
     Dosage: (400 MG 1X/4 WEEKS SUBCUTANEOUS) (SUBCUTANEOUS)
     Route: 058
     Dates: start: 20100901, end: 20101216
  2. CIMZIA [Suspect]
     Indication: CROHN'S DISEASE
     Dosage: (400 MG 1X/4 WEEKS SUBCUTANEOUS) (SUBCUTANEOUS)
     Route: 058
     Dates: start: 20100301, end: 20100101
  3. METHOTREXATE [Concomitant]

REACTIONS (5)
  - DRUG DOSE OMISSION [None]
  - PELVIC ABSCESS [None]
  - DRUG INEFFECTIVE [None]
  - INTESTINAL FISTULA [None]
  - B-CELL LYMPHOMA [None]
